FAERS Safety Report 9370427 (Version 1)
Quarter: 2013Q2

REPORT INFORMATION
  Report Type: Spontaneous
  Country: FR (occurrence: FR)
  Receive Date: 20130626
  Receipt Date: 20130626
  Transmission Date: 20140414
  Serious: Yes (Life-Threatening, Other)
  Sender: FDA-Public Use
  Company Number: FR-PFIZER INC-2013188318

PATIENT
  Age: 63 Year
  Sex: Male

DRUGS (6)
  1. LYRICA [Suspect]
     Route: 048
  2. LIORESAL [Suspect]
     Dosage: 10 MG, UNK
     Route: 048
  3. TRANXENE [Suspect]
     Route: 048
  4. SEROPLEX [Suspect]
     Route: 048
  5. TRAMADOL HYDROCHLORIDE [Suspect]
     Route: 048
  6. HALDOL [Suspect]
     Route: 048

REACTIONS (11)
  - Coma [Recovered/Resolved]
  - Hypothermia [Recovered/Resolved]
  - Hypertension [Recovered/Resolved]
  - Sinus bradycardia [Recovered/Resolved]
  - Extrapyramidal disorder [Recovered/Resolved]
  - Hallucination [Recovered/Resolved]
  - Toxicity to various agents [Recovered/Resolved]
  - Disorientation [Unknown]
  - Abnormal behaviour [Unknown]
  - Muscle spasticity [Unknown]
  - Blood alcohol increased [Unknown]
